FAERS Safety Report 10009752 (Version 2)
Quarter: 2014Q1

REPORT INFORMATION
  Report Type: Spontaneous
  Country: US (occurrence: US)
  Receive Date: 20140312
  Receipt Date: 20140312
  Transmission Date: 20141002
  Serious: No
  Sender: FDA-Public Use
  Company Number: US-INCYTE CORPORATION-2012IN002303

PATIENT
  Age: 60 Year
  Sex: Female
  Weight: 59.86 kg

DRUGS (4)
  1. JAKAFI [Suspect]
     Dosage: 20 MG, BID
     Route: 048
     Dates: start: 20121001, end: 20121029
  2. HYDREA [Suspect]
     Dosage: 1 G, QD
     Dates: start: 200208, end: 20120827
  3. ASA [Concomitant]
     Dosage: 160 MG Q WEEK
  4. CLARITIN [Concomitant]
     Dosage: PRN

REACTIONS (1)
  - Skin ulcer [Unknown]
